FAERS Safety Report 7543889-X (Version None)
Quarter: 2011Q2

REPORT INFORMATION
  Report Type: 
  Country: None (occurrence: None)
  Receive Date: 20110613
  Receipt Date: 20110531
  Transmission Date: 20111010
  Serious: Yes (Other)
  Sender: FDA-Public Use
  Company Number: JP-MYLANLABS-2011S1011654

PATIENT
  Age: 69 Year
  Sex: Female

DRUGS (7)
  1. OMEPRAZOLE [Suspect]
     Indication: GASTRITIS
     Route: 065
  2. TELMISARTAN [Concomitant]
     Route: 065
  3. EZETIMIBE [Concomitant]
     Route: 065
  4. GLIMEPIRIDE [Concomitant]
     Route: 065
  5. BENIDIPINE [Concomitant]
     Route: 065
  6. EICOSAPENTAENOIC ACID [Concomitant]
     Route: 065
  7. ALFACALCIDOL [Suspect]
     Indication: HYPOCALCAEMIA
     Dosage: 2 MICROG/DAY
     Route: 065

REACTIONS (1)
  - HYPOKALAEMIA [None]
